FAERS Safety Report 12796918 (Version 1)
Quarter: 2016Q3

REPORT INFORMATION
  Report Type: Spontaneous
  Country: US (occurrence: US)
  Receive Date: 20160929
  Receipt Date: 20160929
  Transmission Date: 20161109
  Serious: Yes (Death)
  Sender: FDA-Public Use
  Company Number: None

PATIENT
  Age: 65 Year
  Sex: Female

DRUGS (5)
  1. MYCOPHENOLATE MOF CAP 250MG [Suspect]
     Active Substance: MYCOPHENOLATE MOFETIL
     Indication: SENILE OSTEOPOROSIS
  2. MYCOPHENOLATE MOF CAP 250MG [Suspect]
     Active Substance: MYCOPHENOLATE MOFETIL
     Indication: HYPERLIPIDAEMIA
  3. MYCOPHENOLATE MOF CAP 250MG [Suspect]
     Active Substance: MYCOPHENOLATE MOFETIL
     Indication: PEMPHIGUS
  4. MYCOPHENOLATE MOF CAP 250MG [Suspect]
     Active Substance: MYCOPHENOLATE MOFETIL
     Indication: ARTHROPATHY
  5. MYCOPHENOLATE MOF CAP 250MG [Suspect]
     Active Substance: MYCOPHENOLATE MOFETIL
     Indication: RENAL TRANSPLANT

REACTIONS (1)
  - Death [None]

NARRATIVE: CASE EVENT DATE: 20160901
